FAERS Safety Report 8782706 (Version 2)
Quarter: 2013Q3

REPORT INFORMATION
  Report Type: Spontaneous
  Country: US (occurrence: US)
  Receive Date: 20120913
  Receipt Date: 20130730
  Transmission Date: 20140515
  Serious: No
  Sender: FDA-Public Use
  Company Number: US-ASTRAZENECA-2012SE65864

PATIENT
  Age: 60 Year
  Sex: Female
  Weight: 63.5 kg

DRUGS (14)
  1. SEROQUEL [Suspect]
     Indication: BIPOLAR DISORDER
     Route: 048
  2. SEROQUEL [Suspect]
     Indication: DEPRESSION
     Route: 048
  3. SEROQUEL [Suspect]
     Indication: POST-TRAUMATIC STRESS DISORDER
     Route: 048
  4. SEROQUEL [Suspect]
     Indication: ANXIETY
     Route: 048
  5. ATENOLOL [Concomitant]
     Indication: BLOOD PRESSURE ABNORMAL
     Dosage: BID
     Route: 048
  6. SIMVASTATIN [Concomitant]
     Indication: BLOOD CHOLESTEROL INCREASED
     Dosage: DAILY
     Route: 048
  7. CLONAZEPAM [Concomitant]
     Indication: ANXIETY
     Dosage: BID
     Route: 048
  8. CLONAZEPAM [Concomitant]
     Indication: ANXIETY
     Dosage: HS
     Route: 048
  9. TRAZADONE [Concomitant]
     Indication: DEPRESSION
     Dosage: DAILY
     Route: 048
  10. TRAZADONE [Concomitant]
     Indication: SLEEP DISORDER
     Dosage: DAILY
     Route: 048
  11. SERTRALINE [Concomitant]
     Indication: DEPRESSION
     Dosage: DAILY
     Route: 048
  12. ASPIRIN [Concomitant]
     Indication: ANTIPLATELET THERAPY
     Route: 048
  13. VITAMIN D [Concomitant]
     Indication: VITAMIN SUPPLEMENTATION
     Dosage: DAILY
     Route: 048
  14. MULTIVITAMIN [Concomitant]
     Indication: VITAMIN SUPPLEMENTATION
     Dosage: DAILY
     Route: 048

REACTIONS (8)
  - Hypertension [Unknown]
  - Diarrhoea [Unknown]
  - Nausea [Unknown]
  - Abdominal pain [Unknown]
  - Gastrointestinal disorder [Unknown]
  - Gastrointestinal disorder [Unknown]
  - Constipation [Unknown]
  - Blood cholesterol increased [Unknown]
